FAERS Safety Report 7685849-4 (Version None)
Quarter: 2011Q3

REPORT INFORMATION
  Report Type: 
  Country: None (occurrence: None)
  Receive Date: 20110816
  Receipt Date: 20110809
  Transmission Date: 20111222
  Serious: Yes (Other)
  Sender: FDA-Public Use
  Company Number: GB-ROCHE-796094

PATIENT
  Sex: Female

DRUGS (1)
  1. TOCILIZUMAB [Suspect]
     Route: 042

REACTIONS (3)
  - VOCAL CORD POLYP [None]
  - LOWER RESPIRATORY TRACT INFECTION [None]
  - DYSPHONIA [None]
